FAERS Safety Report 7943824-6 (Version None)
Quarter: 2011Q4

REPORT INFORMATION
  Report Type: 
  Country: None (occurrence: None)
  Receive Date: 20111128
  Receipt Date: 20111123
  Transmission Date: 20120403
  Serious: Yes (Other)
  Sender: FDA-Public Use
  Company Number: DE-AMGEN-DEUSP2011061877

PATIENT
  Age: 76 Year
  Sex: Male

DRUGS (1)
  1. XGEVA [Suspect]
     Indication: PROSTATE CANCER
     Dosage: UNK
     Dates: start: 20110901

REACTIONS (8)
  - METASTASIS [None]
  - HEPATOMEGALY [None]
  - HYPOTONIA [None]
  - ABDOMINAL PAIN [None]
  - ANGIOPATHY [None]
  - ASCITES [None]
  - CHILLS [None]
  - DYSPNOEA [None]
